FAERS Safety Report 7865933-2 (Version None)
Quarter: 2011Q4

REPORT INFORMATION
  Report Type: 
  Country: None (occurrence: None)
  Receive Date: 20111028
  Receipt Date: 20110322
  Transmission Date: 20120403
  Serious: No
  Sender: FDA-Public Use
  Company Number: US-GLAXOSMITHKLINE-A0919439A

PATIENT
  Age: 56 Year
  Sex: Female

DRUGS (2)
  1. ADVAIR DISKUS 100/50 [Suspect]
     Indication: BRONCHITIS
     Dosage: 1PUFF SINGLE DOSE
     Route: 055
     Dates: start: 20110321, end: 20110321
  2. LEVAQUIN [Concomitant]

REACTIONS (8)
  - NERVOUSNESS [None]
  - NAUSEA [None]
  - CHEST PAIN [None]
  - DIZZINESS [None]
  - FEELING JITTERY [None]
  - INSOMNIA [None]
  - MALAISE [None]
  - PALPITATIONS [None]
